FAERS Safety Report 21434665 (Version 2)
Quarter: 2022Q4

REPORT INFORMATION
  Report Type: Report from Study
  Country: US (occurrence: US)
  Receive Date: 20221010
  Receipt Date: 20221031
  Transmission Date: 20230113
  Serious: No
  Sender: FDA-Public Use
  Company Number: US-ABBVIE-4136636

PATIENT
  Sex: Female

DRUGS (4)
  1. SKYRIZI [Suspect]
     Active Substance: RISANKIZUMAB-RZAA
     Indication: Psoriasis
     Route: 058
  2. SKYRIZI [Suspect]
     Active Substance: RISANKIZUMAB-RZAA
     Route: 058
  3. Pfizer/BioNTech [Concomitant]
     Indication: Product used for unknown indication
     Dosage: FIRST DOSE
     Dates: start: 20210319, end: 20210319
  4. Pfizer/BioNTech [Concomitant]
     Indication: Product used for unknown indication
     Dosage: SECOND DOSE
     Dates: start: 20210409, end: 20210409

REACTIONS (1)
  - Infection [Recovering/Resolving]
